FAERS Safety Report 18638729 (Version 2)
Quarter: 2021Q2

REPORT INFORMATION
  Report Type: Spontaneous
  Country: US (occurrence: US)
  Receive Date: 20201218
  Receipt Date: 20210408
  Transmission Date: 20210717
  Serious: No
  Sender: FDA-Public Use
  Company Number: US-PFIZER INC-2020499584

PATIENT
  Age: 60 Year
  Sex: Female

DRUGS (2)
  1. XELJANZ XR [Suspect]
     Active Substance: TOFACITINIB CITRATE
     Indication: RHEUMATOID ARTHRITIS
     Dosage: 11 MG, 1X/DAY (ONCE A DAY)
     Route: 048
     Dates: start: 202011
  2. CELEBREX [Concomitant]
     Active Substance: CELECOXIB
     Dosage: UNK

REACTIONS (3)
  - Therapeutic product effect delayed [Unknown]
  - Depressed mood [Unknown]
  - Weight increased [Unknown]
